FAERS Safety Report 6456374-3 (Version None)
Quarter: 2009Q4

REPORT INFORMATION
  Report Type: 
  Country: None (occurrence: None)
  Receive Date: 20091125
  Receipt Date: 20091117
  Transmission Date: 20100525
  Serious: Yes (Other)
  Sender: FDA-Public Use
  Company Number: US-AMGEN-QUU375067

PATIENT
  Sex: Female

DRUGS (2)
  1. ENBREL [Suspect]
     Indication: RHEUMATOID ARTHRITIS
     Route: 058
     Dates: start: 20030103, end: 20080323
  2. METHOTREXATE [Concomitant]

REACTIONS (5)
  - ASTHENIA [None]
  - BIOPSY LYMPH GLAND ABNORMAL [None]
  - PULMONARY GRANULOMA [None]
  - PYREXIA [None]
  - RHEUMATOID ARTHRITIS [None]
